FAERS Safety Report 13461661 (Version 2)
Quarter: 2017Q2

REPORT INFORMATION
  Report Type: Spontaneous
  Country: DE (occurrence: DE)
  Receive Date: 20170420
  Receipt Date: 20170503
  Transmission Date: 20170830
  Serious: Yes (Other)
  Sender: FDA-Public Use
  Company Number: DE-GLAXOSMITHKLINE-DE2017GSK055922

PATIENT
  Age: 43 Year
  Sex: Female

DRUGS (2)
  1. JODID 100 [Concomitant]
  2. NICOTINELL [Suspect]
     Active Substance: NICOTINE
     Indication: PRODUCT USED FOR UNKNOWN INDICATION
     Dosage: UNK
     Dates: start: 20170412

REACTIONS (5)
  - Tachycardia [Recovered/Resolved]
  - Nausea [Recovered/Resolved]
  - Headache [Recovered/Resolved]
  - Vomiting [Recovered/Resolved]
  - Circulatory collapse [Recovered/Resolved]

NARRATIVE: CASE EVENT DATE: 201704
